FAERS Safety Report 5984982-2 (Version None)
Quarter: 2008Q4

REPORT INFORMATION
  Report Type: 
  Country: None (occurrence: None)
  Receive Date: 20081208
  Receipt Date: 20080630
  Transmission Date: 20090506
  Serious: Yes (Other)
  Sender: FDA-Public Use
  Company Number: US-AMGEN-QUU289625

PATIENT
  Sex: Female
  Weight: 84 kg

DRUGS (11)
  1. ENBREL [Suspect]
     Indication: RHEUMATOID ARTHRITIS
     Route: 058
     Dates: start: 20041209
  2. METHOTREXATE [Concomitant]
     Dates: start: 20041110
  3. SOMA [Concomitant]
     Dates: start: 20030101
  4. CARDIZEM [Concomitant]
     Dates: start: 20000101
  5. BENICAR [Concomitant]
     Dates: start: 20000101
  6. PAXIL [Concomitant]
     Dates: start: 20050816
  7. NEURONTIN [Concomitant]
     Dates: start: 20040301
  8. TAMOXIFEN [Concomitant]
     Dates: start: 20060601
  9. ALLEGRA [Concomitant]
     Dates: start: 20050101, end: 20050501
  10. CELEBREX [Concomitant]
     Dates: start: 20041101, end: 20050601
  11. RELAFEN [Concomitant]
     Dates: start: 20050601, end: 20051101

REACTIONS (7)
  - BREAST CANCER [None]
  - INJECTION SITE ERYTHEMA [None]
  - INJECTION SITE PRURITUS [None]
  - INJECTION SITE WARMTH [None]
  - NIPPLE DISORDER [None]
  - RHEUMATOID ARTHRITIS [None]
  - SOMNOLENCE [None]
